FAERS Safety Report 12445224 (Version 2)
Quarter: 2016Q3

REPORT INFORMATION
  Report Type: Spontaneous
  Country: US (occurrence: US)
  Receive Date: 20160607
  Receipt Date: 20160830
  Transmission Date: 20161109
  Serious: No
  Sender: FDA-Public Use
  Company Number: US-009507513-1606USA001596

PATIENT
  Age: 16 Year
  Sex: Female
  Weight: 82 kg

DRUGS (2)
  1. NEXPLANON [Suspect]
     Active Substance: ETONOGESTREL
     Dosage: 68 MG, THREE YEARS
     Route: 059
     Dates: start: 20160414
  2. NEXPLANON [Suspect]
     Active Substance: ETONOGESTREL
     Indication: CONTRACEPTION
     Dosage: UNK
     Route: 059
     Dates: start: 20151203, end: 20160404

REACTIONS (6)
  - Product quality issue [Unknown]
  - Device deployment issue [Recovered/Resolved]
  - No adverse event [Unknown]
  - Vaginal haemorrhage [Recovered/Resolved]
  - Complication of device insertion [Unknown]
  - Weight increased [Unknown]

NARRATIVE: CASE EVENT DATE: 201512
